FAERS Safety Report 9044886 (Version 2)
Quarter: 2013Q1

REPORT INFORMATION
  Report Type: Spontaneous
  Country: JP (occurrence: JP)
  Receive Date: 20130130
  Receipt Date: 20130206
  Transmission Date: 20140127
  Serious: Yes (Life-Threatening, Hospitalization)
  Sender: FDA-Public Use
  Company Number: JP-GLAXOSMITHKLINE-B0827238A

PATIENT
  Age: 62 None
  Sex: Female

DRUGS (7)
  1. LAMICTAL [Suspect]
     Indication: DEPRESSION
     Dosage: 25MG PER DAY
     Route: 048
     Dates: start: 20120719, end: 2012
  2. LAMICTAL [Suspect]
     Indication: DEPRESSION
     Dosage: 25MG TWICE PER DAY
     Route: 048
     Dates: start: 2012, end: 20120823
  3. LAMICTAL [Suspect]
     Indication: DEPRESSION
     Route: 048
     Dates: start: 20120824, end: 20120825
  4. INVEGA [Suspect]
     Indication: DEPRESSION
     Dosage: 3MG PER DAY
     Route: 048
     Dates: start: 20120719, end: 20120828
  5. SEROQUEL [Suspect]
     Indication: DEPRESSION
     Dosage: 125MG PER DAY
     Route: 048
     Dates: start: 20120719, end: 20121116
  6. EURODIN [Suspect]
     Indication: INSOMNIA
     Dosage: 4MG PER DAY
     Route: 048
     Dates: start: 20120719, end: 20120828
  7. MYSLEE [Suspect]
     Indication: INSOMNIA
     Dosage: 10MG PER DAY
     Route: 048
     Dates: start: 20120719, end: 20120828

REACTIONS (13)
  - Toxic epidermal necrolysis [Recovered/Resolved with Sequelae]
  - Rash generalised [Unknown]
  - Pyrexia [Unknown]
  - Erythema [Unknown]
  - Constipation [Unknown]
  - Ocular hyperaemia [Unknown]
  - Erythema of eyelid [Unknown]
  - Eye discharge [Unknown]
  - Oral mucosa erosion [Unknown]
  - Lip erosion [Unknown]
  - Rash macular [Unknown]
  - Erythema [Unknown]
  - Lymphadenopathy [Unknown]
